FAERS Safety Report 5871580-4 (Version None)
Quarter: 2008Q3

REPORT INFORMATION
  Report Type: 
  Country: None (occurrence: None)
  Receive Date: 20080905
  Receipt Date: 20080523
  Transmission Date: 20090109
  Serious: Yes (Other)
  Sender: FDA-Public Use
  Company Number: A0730565A

PATIENT
  Age: 58 Year
  Sex: Male

DRUGS (3)
  1. REQUIP [Suspect]
     Indication: PARKINSON'S DISEASE
     Dosage: 3MGD PER DAY
     Route: 048
     Dates: start: 20080101
  2. AZILECT [Suspect]
     Indication: PARKINSON'S DISEASE
     Dosage: 1MGD PER DAY
     Route: 048
     Dates: start: 20080101
  3. CO Q 10 [Concomitant]

REACTIONS (1)
  - SYNCOPE [None]
